FAERS Safety Report 4895542-9 (Version None)
Quarter: 2006Q1

REPORT INFORMATION
  Report Type: 
  Country: None (occurrence: None)
  Receive Date: 20060125
  Receipt Date: 20040329
  Transmission Date: 20060701
  Serious: Yes (Hospitalization)
  Sender: FDA-Public Use
  Company Number: FR_040303809

PATIENT
  Age: 56 Year
  Sex: Male
  Weight: 81 kg

DRUGS (4)
  1. VANCOMYCIN [Suspect]
     Dosage: 850 MG/3 DAY
     Dates: start: 20030926, end: 20030927
  2. FUCIDINE CAP [Concomitant]
  3. STILNOX (ZOLPIDEM) [Concomitant]
  4. INSUMAN [Concomitant]

REACTIONS (4)
  - INFLAMMATION [None]
  - OEDEMA PERIPHERAL [None]
  - PURPURA [None]
  - SKIN REACTION [None]
